FAERS Safety Report 9459835 (Version 1)
Quarter: 2013Q3

REPORT INFORMATION
  Report Type: Spontaneous
  Country: US (occurrence: US)
  Receive Date: 20130815
  Receipt Date: 20130815
  Transmission Date: 20140515
  Serious: Yes (Death)
  Sender: FDA-Public Use
  Company Number: US-PFIZER INC-2013235190

PATIENT
  Age: 53 Year
  Sex: Male

DRUGS (11)
  1. SUTENT [Suspect]
     Indication: RENAL CANCER
     Dosage: 50 MG, UNK
     Dates: start: 20130709
  2. ALLOPURINOL [Concomitant]
  3. PRILOSEC [Concomitant]
  4. IRON [Concomitant]
  5. PROTONIX [Concomitant]
  6. LISINOPRIL [Concomitant]
  7. LORTAB [Concomitant]
  8. ZOFRAN [Concomitant]
  9. NORVASC [Concomitant]
  10. ONDANSETRON HYDROCHLORIDE [Concomitant]
  11. ULTRAM [Concomitant]

REACTIONS (1)
  - Death [Fatal]
